FAERS Safety Report 8068551-9 (Version None)
Quarter: 2012Q1

REPORT INFORMATION
  Report Type: 
  Country: None (occurrence: None)
  Receive Date: 20120124
  Receipt Date: 20111102
  Transmission Date: 20120608
  Serious: No
  Sender: FDA-Public Use
  Company Number: US-AMGEN-USASP2011057321

PATIENT
  Age: 80 Year
  Sex: Female

DRUGS (4)
  1. OSTEO BI-FLEX [Concomitant]
  2. PROLIA [Suspect]
     Indication: BREAST CANCER
     Dosage: 60 MG, Q6MO
     Dates: start: 20111001
  3. AROMASIN [Concomitant]
  4. XANAX [Concomitant]
     Dosage: UNK

REACTIONS (2)
  - MYALGIA [None]
  - BACK PAIN [None]
